FAERS Safety Report 5084258-4 (Version None)
Quarter: 2006Q3

REPORT INFORMATION
  Report Type: 
  Country: None (occurrence: None)
  Receive Date: 20060816
  Receipt Date: 20060807
  Transmission Date: 20061208
  Serious: Yes (Death)
  Sender: FDA-Public Use
  Company Number: 2006-08-0222

PATIENT
  Age: 49 Year
  Sex: Male

DRUGS (2)
  1. RIBAVIRIN [Suspect]
     Dosage: 1200 MG QD ORAL
     Route: 048
  2. INFERGEN [Suspect]
     Dosage: 15 MCG QD SUBCUTANEOUS
     Route: 058
     Dates: start: 20051001, end: 20060401

REACTIONS (1)
  - CEREBRAL HAEMORRHAGE [None]
